FAERS Safety Report 11203041 (Version 1)
Quarter: 2015Q2

REPORT INFORMATION
  Report Type: Spontaneous
  Country: US (occurrence: None)
  Receive Date: 20150618
  Receipt Date: 20150618
  Transmission Date: 20150821
  Serious: No
  Sender: FDA-Public Use
  Company Number: None

PATIENT
  Age: 67 Year
  Sex: Male
  Weight: 119.5 kg

DRUGS (3)
  1. BENZTROPINE [Suspect]
     Active Substance: BENZTROPINE
     Indication: ATRIAL FIBRILLATION
     Route: 048
     Dates: start: 20120825, end: 20120831
  2. BENZTROPINE [Suspect]
     Active Substance: BENZTROPINE
     Route: 048
     Dates: start: 20120825, end: 20120831
  3. BENZTROPINE [Suspect]
     Active Substance: BENZTROPINE
     Indication: BIPOLAR I DISORDER
     Route: 048
     Dates: start: 20120825, end: 20120831

REACTIONS (1)
  - Ventricular tachycardia [None]

NARRATIVE: CASE EVENT DATE: 20120825
